FAERS Safety Report 4987735-7 (Version None)
Quarter: 2006Q2

REPORT INFORMATION
  Report Type: 
  Country: None (occurrence: None)
  Receive Date: 20060424
  Receipt Date: 20060412
  Transmission Date: 20061013
  Serious: Yes (Other)
  Sender: FDA-Public Use
  Company Number: HQWYE805912APR06

PATIENT
  Age: 35 Year
  Sex: Female

DRUGS (1)
  1. TRIAGYNON (LEVONORGESTREL/ETHINYL ESTRADIOL, TABLET) [Suspect]
     Dosage: 1 TABLET 1X PER 1 DAY ORAL
     Route: 048
     Dates: start: 20041101, end: 20060209

REACTIONS (1)
  - TRANSIENT ISCHAEMIC ATTACK [None]
